FAERS Safety Report 9255749 (Version 1)
Quarter: 2013Q2

REPORT INFORMATION
  Report Type: Spontaneous
  Country: JP (occurrence: None)
  Receive Date: 20130418
  Receipt Date: 20130418
  Transmission Date: 20140414
  Serious: Yes (Other)
  Sender: FDA-Public Use
  Company Number: 2001JP001336

PATIENT
  Age: 7 Year
  Sex: Female

DRUGS (13)
  1. PROTOPIC [Suspect]
     Indication: DERMATITIS ATOPIC
     Route: 061
  2. WHITE PETROLEUM (PETROLATUM) OINTMENT [Concomitant]
  3. LOCOID (HYDROCORTISONE BUTYRATE) OINTMENT [Concomitant]
  4. HIRUDOID (HEPARINOID) OINTMENT [Concomitant]
  5. RINDERON V (BETAMETHASONE VALERATE) LOTION [Concomitant]
  6. RINDERON-V (BETAMETHASONE VALERATE) OINTMENT [Concomitant]
  7. FULMETA (MOMETASONE FUROATE) OINTMENT [Concomitant]
  8. ANTEBATE (BETAMETHASONE BUTYRATE PROPIONATE) LOTION [Concomitant]
  9. CALONAL (PARACETAMOL) [Concomitant]
  10. CLARITIN (LORATADINE) [Concomitant]
  11. ZADITEN (KETOTIFEN FUMARATE) SYRUP [Concomitant]
  12. CEFZON (CEFDINIR) FINE GRANULE [Concomitant]
  13. ARASENA A (VIDARABINE) OINTMENT [Concomitant]

REACTIONS (4)
  - Off label use [None]
  - Glomerulonephritis [None]
  - Herpes simplex [None]
  - Folliculitis [None]
